FAERS Safety Report 17941696 (Version 1)
Quarter: 2020Q2

REPORT INFORMATION
  Report Type: Spontaneous
  Country: DE (occurrence: DE)
  Receive Date: 20200624
  Receipt Date: 20200624
  Transmission Date: 20200714
  Serious: No
  Sender: FDA-Public Use
  Company Number: DE-009507513-2006DEU008356

PATIENT
  Age: 27 Year
  Sex: Female

DRUGS (1)
  1. ECURAL L?SUNG, 1 MG/G L?SUNG ZUR ANWENDUNG AUF DER HAUT [Suspect]
     Active Substance: MOMETASONE FUROATE
     Indication: EAR DISORDER
     Dates: start: 20200619

REACTIONS (4)
  - Ear pain [Unknown]
  - Ear discomfort [Unknown]
  - Product use in unapproved indication [Unknown]
  - Incorrect route of product administration [Unknown]

NARRATIVE: CASE EVENT DATE: 20200619
